FAERS Safety Report 9782968 (Version 1)
Quarter: 2013Q4

REPORT INFORMATION
  Report Type: Spontaneous
  Country: ES (occurrence: ES)
  Receive Date: 20131226
  Receipt Date: 20131226
  Transmission Date: 20140711
  Serious: Yes (Other)
  Sender: FDA-Public Use
  Company Number: ES-PFIZER INC-2013362814

PATIENT
  Age: 67 Year
  Sex: Female

DRUGS (4)
  1. METHYLPREDNISOLONE SODIUM SUCCINATE [Suspect]
     Indication: CELLULITIS ORBITAL
     Dosage: 250 MG, 4X/DAY
     Route: 042
  2. METHYLPREDNISOLONE SODIUM SUCCINATE [Suspect]
     Dosage: 1 G, 1X/DAY
     Route: 042
  3. VANCOMYCIN [Concomitant]
     Indication: CELLULITIS ORBITAL
     Dosage: 1 G, 2X/DAY
     Route: 042
  4. CEFTRIAXONE [Concomitant]
     Indication: CELLULITIS ORBITAL
     Dosage: 1 G, 2X/DAY
     Route: 042

REACTIONS (3)
  - Orbital oedema [Unknown]
  - Drug ineffective [Unknown]
  - Pyrexia [Unknown]
